FAERS Safety Report 11184476 (Version 2)
Quarter: 2015Q3

REPORT INFORMATION
  Report Type: Spontaneous
  Country: US (occurrence: US)
  Receive Date: 20150612
  Receipt Date: 20150806
  Transmission Date: 20151125
  Serious: Yes (Death, Hospitalization)
  Sender: FDA-Public Use
  Company Number: US-009507513-1506USA004306

PATIENT
  Age: 67 Year
  Sex: Female
  Weight: 83.9 kg

DRUGS (1)
  1. JANUVIA [Suspect]
     Active Substance: SITAGLIPTIN PHOSPHATE
     Indication: DIABETES MELLITUS
     Dosage: UNK, QD
     Dates: start: 20100601, end: 20130425

REACTIONS (3)
  - Abdominal pain upper [Unknown]
  - Pancreatic carcinoma [Fatal]
  - Back pain [Unknown]

NARRATIVE: CASE EVENT DATE: 201304
